FAERS Safety Report 12633350 (Version 2)
Quarter: 2016Q3

REPORT INFORMATION
  Report Type: Spontaneous
  Country: US (occurrence: US)
  Receive Date: 20160808
  Receipt Date: 20160808
  Transmission Date: 20161109
  Serious: No
  Sender: FDA-Public Use
  Company Number: US-BEH-2016060667

PATIENT
  Sex: Female
  Weight: 58 kg

DRUGS (17)
  1. NORVASC [Concomitant]
     Active Substance: AMLODIPINE BESYLATE
  2. DIPHENHYDRAMINE. [Concomitant]
     Active Substance: DIPHENHYDRAMINE
  3. KLONOPIN [Concomitant]
     Active Substance: CLONAZEPAM
  4. CENTRUM SILVER [Concomitant]
     Active Substance: MINERALS\VITAMINS
  5. BOTOX [Concomitant]
     Active Substance: ONABOTULINUMTOXINA
  6. CLARITIN [Concomitant]
     Active Substance: LORATADINE
  7. LIDOCAINE/PRILOCAINE [Concomitant]
     Active Substance: LIDOCAINE\PRILOCAINE
  8. NEURONTIN [Concomitant]
     Active Substance: GABAPENTIN
  9. EPIPEN [Concomitant]
     Active Substance: EPINEPHRINE
  10. HIZENTRA [Suspect]
     Active Substance: HUMAN IMMUNOGLOBULIN G
     Indication: HYPOGLOBULINAEMIA
     Route: 058
  11. IMITREX [Concomitant]
     Active Substance: SUMATRIPTAN SUCCINATE
  12. CELEXA [Concomitant]
     Active Substance: CITALOPRAM HYDROBROMIDE
  13. LISINOPRIL. [Concomitant]
     Active Substance: LISINOPRIL
  14. VITAMIN C [Concomitant]
     Active Substance: ASCORBIC ACID
  15. VITAMIN D3 [Concomitant]
     Active Substance: CHOLECALCIFEROL
  16. HIZENTRA [Suspect]
     Active Substance: HUMAN IMMUNOGLOBULIN G
     Indication: IMMUNODEFICIENCY COMMON VARIABLE
     Route: 058
  17. SUMATRIPTAN SUCCINATE. [Concomitant]
     Active Substance: SUMATRIPTAN SUCCINATE

REACTIONS (1)
  - Nasopharyngitis [Recovered/Resolved]
